FAERS Safety Report 6993674-2 (Version None)
Quarter: 2010Q3

REPORT INFORMATION
  Report Type: 
  Country: None (occurrence: None)
  Receive Date: 20100917
  Receipt Date: 20071017
  Transmission Date: 20110219
  Serious: Yes (Other)
  Sender: FDA-Public Use
  Company Number: US-ASTRAZENECA-2006UW24087

PATIENT
  Sex: Male
  Weight: 107.5 kg

DRUGS (7)
  1. SEROQUEL [Suspect]
     Indication: AFFECTIVE DISORDER
     Dosage: 100MG  - 1200MG
     Route: 048
     Dates: start: 20010905
  2. LITHIUM CARBONATE [Concomitant]
     Dosage: 450MG -600MG
     Route: 048
     Dates: start: 20020808
  3. ATENOLOL [Concomitant]
     Dosage: 25MG -50MG
     Route: 048
     Dates: start: 20020101
  4. GEODON [Concomitant]
     Route: 048
     Dates: start: 20010101
  5. NEURONTIN [Concomitant]
     Dosage: 300MG -1800MG
     Route: 048
     Dates: start: 20020808
  6. GABITRIL [Concomitant]
     Route: 048
     Dates: start: 20031118
  7. EFFEXOR XR [Concomitant]
     Dosage: 37.5MG -75MG
     Route: 048
     Dates: start: 20020808

REACTIONS (1)
  - PANCREATITIS [None]
